FAERS Safety Report 24861261 (Version 4)
Quarter: 2025Q1

REPORT INFORMATION
  Report Type: Report from Study
  Country: CA (occurrence: CA)
  Receive Date: 20250120
  Receipt Date: 20250321
  Transmission Date: 20250409
  Serious: Yes (Other)
  Sender: TAKEDA
  Company Number: CA-TAKEDA-2025TUS004580

PATIENT
  Sex: Female

DRUGS (4)
  1. VEDOLIZUMAB [Suspect]
     Active Substance: VEDOLIZUMAB
     Indication: Colitis ulcerative
  2. BUDESONIDE [Concomitant]
     Active Substance: BUDESONIDE
  3. CLONAZEPAM [Concomitant]
     Active Substance: CLONAZEPAM
  4. VIIBRYD [Concomitant]
     Active Substance: VILAZODONE HYDROCHLORIDE

REACTIONS (6)
  - Colitis ulcerative [Unknown]
  - Bone pain [Unknown]
  - Restless legs syndrome [Unknown]
  - Anxiety [Unknown]
  - Arthralgia [Unknown]
  - Headache [Unknown]
